FAERS Safety Report 6247943 (Version 2)
Quarter: 2015Q1

REPORT INFORMATION
  Report Type: Spontaneous
  Country: US (occurrence: US)
  Receive Date: 20070228
  Receipt Date: 20150327
  Transmission Date: 20150721
  Serious: No
  Sender: FDA-Public Use
  Company Number: US-GLAXOSMITHKLINE-A0599159A

PATIENT
  Sex: Female

DRUGS (11)
  1. PROBIOTICS [Concomitant]
     Active Substance: PROBIOTICS NOS
  2. VITAMIN D [Concomitant]
     Active Substance: CHOLECALCIFEROL
  3. ACTONEL [Concomitant]
     Active Substance: RISEDRONATE SODIUM
  4. IMITREX SPRAY [Suspect]
     Active Substance: SUMATRIPTAN
     Indication: MIGRAINE
     Dosage: 20 MG, PRN
     Route: 045
  5. IMITREX [Suspect]
     Active Substance: SUMATRIPTAN\SUMATRIPTAN SUCCINATE
     Indication: MIGRAINE
     Dosage: UNK, PRN
     Dates: start: 1992
  6. VITAMIN B12 [Concomitant]
     Active Substance: CYANOCOBALAMIN
  7. IMITREX [Suspect]
     Active Substance: SUMATRIPTAN\SUMATRIPTAN SUCCINATE
     Indication: MIGRAINE
     Dosage: 25 MG, PRN
     Route: 048
     Dates: start: 1194
  8. IMITREX [Suspect]
     Active Substance: SUMATRIPTAN\SUMATRIPTAN SUCCINATE
     Indication: MIGRAINE
     Route: 048
     Dates: start: 2004
  9. SUMATRIPTAN. [Concomitant]
     Active Substance: SUMATRIPTAN
  10. ESTRIOL [Concomitant]
     Active Substance: ESTRIOL
  11. CALCIUM CO3 + MINERALS + VITAMINS [Concomitant]
     Active Substance: CALCIUM CARBONATE\MINERALS\VITAMINS

REACTIONS (14)
  - Blood folate decreased [Recovering/Resolving]
  - Somnolence [Recovered/Resolved]
  - White blood cell count decreased [Not Recovered/Not Resolved]
  - Fatigue [Not Recovered/Not Resolved]
  - Drug ineffective [Unknown]
  - Haematocrit decreased [Not Recovered/Not Resolved]
  - Palpitations [Recovered/Resolved]
  - Red blood cell count decreased [Not Recovered/Not Resolved]
  - Dysphagia [Unknown]
  - Cardiac disorder [Recovered/Resolved]
  - Hyperaesthesia [Unknown]
  - Platelet count decreased [Not Recovered/Not Resolved]
  - Dizziness [Recovered/Resolved]
  - Therapeutic response decreased [Unknown]

NARRATIVE: CASE EVENT DATE: 2004
